FAERS Safety Report 10575379 (Version 3)
Quarter: 2014Q4

REPORT INFORMATION
  Report Type: Report from Study
  Country: US (occurrence: US)
  Receive Date: 20141111
  Receipt Date: 20141125
  Transmission Date: 20150529
  Serious: Yes (Death)
  Sender: FDA-Public Use
  Company Number: US-BIOGENIDEC-2014BI113506

PATIENT
  Age: 59 Year
  Sex: Male

DRUGS (1)
  1. TYSABRI [Suspect]
     Active Substance: NATALIZUMAB
     Indication: CROHN^S DISEASE
     Route: 042
     Dates: start: 20140421, end: 20140827

REACTIONS (2)
  - Respiratory failure [Fatal]
  - Crohn^s disease [Unknown]

NARRATIVE: CASE EVENT DATE: 20141022
